APPROVED DRUG PRODUCT: FRAGMIN
Active Ingredient: DALTEPARIN SODIUM
Strength: 5,000IU/0.2ML (25,000IU/ML)
Dosage Form/Route: INJECTABLE;SUBCUTANEOUS
Application: N020287 | Product #003
Applicant: PFIZER INC
Approved: Mar 18, 1996 | RLD: Yes | RS: No | Type: RX